FAERS Safety Report 9553010 (Version 3)
Quarter: 2013Q4

REPORT INFORMATION
  Report Type: Spontaneous
  Country: JP (occurrence: JP)
  Receive Date: 20130925
  Receipt Date: 20131220
  Transmission Date: 20140711
  Serious: Yes (Death, Life-Threatening, Hospitalization, Other)
  Sender: FDA-Public Use
  Company Number: JP-BAYER-2013-114601

PATIENT
  Age: 54 Year
  Sex: Male
  Weight: 50 kg

DRUGS (3)
  1. STIVARGA [Suspect]
     Indication: COLORECTAL CANCER
     Dosage: 160 MG, QD
     Route: 048
     Dates: start: 20130820, end: 20130902
  2. STIVARGA [Suspect]
     Indication: COLORECTAL CANCER
     Dosage: 120 MG, QD
     Route: 048
     Dates: start: 20130903, end: 20130909
  3. STIVARGA [Suspect]
     Indication: COLORECTAL CANCER
     Dosage: 120 MG, QD
     Route: 048
     Dates: start: 20130910, end: 20130916

REACTIONS (6)
  - Colorectal cancer [Fatal]
  - Aspartate aminotransferase increased [Recovering/Resolving]
  - Alanine aminotransferase increased [Recovering/Resolving]
  - Blood bilirubin increased [Recovering/Resolving]
  - Platelet count decreased [Recovering/Resolving]
  - White blood cell count decreased [None]
